FAERS Safety Report 16813680 (Version 2)
Quarter: 2019Q4

REPORT INFORMATION
  Report Type: Spontaneous
  Country: AR (occurrence: AR)
  Receive Date: 20190917
  Receipt Date: 20191017
  Transmission Date: 20200122
  Serious: Yes (Hospitalization, Other)
  Sender: FDA-Public Use
  Company Number: AR-AMGEN-ARGSP2019150791

PATIENT
  Age: 67 Year
  Sex: Female

DRUGS (4)
  1. ACIFOL [FOLIC ACID] [Concomitant]
     Dosage: 1 DOSAGE FORM, WEEKLY
  2. NAPRUX [NAPROXEN SODIUM] [Concomitant]
     Dosage: 1500 MILLIGRAM, DAILY
  3. ENBREL [Suspect]
     Active Substance: ETANERCEPT
     Indication: RHEUMATOID ARTHRITIS
     Dosage: 50 MILLIGRAM, WEEKLY
     Route: 065
     Dates: start: 20171020
  4. ARTRAIT [METHOTREXATE SODIUM] [Concomitant]
     Dosage: 1 DOSAGE FORM, WEEKLY

REACTIONS (4)
  - Spinal fracture [Recovering/Resolving]
  - Spinal disorder [Recovering/Resolving]
  - Fall [Recovering/Resolving]
  - Pain [Recovering/Resolving]

NARRATIVE: CASE EVENT DATE: 201906
